FAERS Safety Report 8459061-5 (Version None)
Quarter: 2012Q2

REPORT INFORMATION
  Report Type: 
  Country: None (occurrence: None)
  Receive Date: 20120618
  Receipt Date: 20120606
  Transmission Date: 20120825
  Serious: Yes (Death, Hospitalization)
  Sender: FDA-Public Use
  Company Number: UTC-018974

PATIENT
  Age: 66 Year
  Sex: Male

DRUGS (2)
  1. TYVASO [Suspect]
     Indication: PULMONARY ARTERIAL HYPERTENSION
     Dosage: 4 IN 1 D, INHALATION
     Route: 055
     Dates: start: 20111109
  2. TYVASO [Suspect]
     Indication: PULMONARY HYPERTENSION
     Dosage: 4 IN 1 D, INHALATION
     Route: 055
     Dates: start: 20111109

REACTIONS (1)
  - INTERSTITIAL LUNG DISEASE [None]
